FAERS Safety Report 13188644 (Version 2)
Quarter: 2017Q1

REPORT INFORMATION
  Report Type: Spontaneous
  Country: GB (occurrence: GB)
  Receive Date: 20170206
  Receipt Date: 20170320
  Transmission Date: 20170428
  Serious: Yes (Other)
  Sender: FDA-Public Use
  Company Number: GB-TAKEDA-2017TUS000689

PATIENT
  Age: 58 Year
  Sex: Female

DRUGS (3)
  1. MERCAPTOPURINE. [Concomitant]
     Active Substance: MERCAPTOPURINE
     Dosage: 50 MG, UNK
  2. ENTYVIO [Suspect]
     Active Substance: VEDOLIZUMAB
     Indication: CROHN^S DISEASE
     Dosage: 300 MG, UNK
     Route: 042
     Dates: start: 20170104
  3. ASACOL [Concomitant]
     Active Substance: MESALAMINE
     Dosage: 1600 MG, BID

REACTIONS (2)
  - Incorrect drug administration rate [Unknown]
  - Cytokine storm [Recovered/Resolved]

NARRATIVE: CASE EVENT DATE: 20170104
